FAERS Safety Report 9355846 (Version 1)
Quarter: 2013Q2

REPORT INFORMATION
  Report Type: Spontaneous
  Country: GB (occurrence: GB)
  Receive Date: 20130619
  Receipt Date: 20130619
  Transmission Date: 20140414
  Serious: Yes (Disabling)
  Sender: FDA-Public Use
  Company Number: GB-TEVA-412938ISR

PATIENT
  Age: 49 Year
  Sex: Female
  Weight: 67.12 kg

DRUGS (2)
  1. LEVOTHYROXINE [Suspect]
     Indication: HYPOTHYROIDISM
     Dosage: 50MCG - 75MCG
     Route: 048
     Dates: start: 20110514, end: 20121221
  2. CITALOPRAM [Concomitant]

REACTIONS (4)
  - Joint stiffness [Recovered/Resolved]
  - Lethargy [Recovered/Resolved]
  - Emotional distress [Recovered/Resolved]
  - Cognitive disorder [Recovered/Resolved]
